FAERS Safety Report 18461998 (Version 1)
Quarter: 2020Q4

REPORT INFORMATION
  Report Type: Spontaneous
  Country: US (occurrence: US)
  Receive Date: 20201103
  Receipt Date: 20201103
  Transmission Date: 20210114
  Serious: Yes (Other)
  Sender: FDA-Public Use
  Company Number: None

PATIENT
  Age: 62 Year
  Sex: Female

DRUGS (4)
  1. NP THYROID [Suspect]
     Active Substance: LEVOTHYROXINE\LIOTHYRONINE
     Indication: HYPOTHYROIDISM
     Route: 048
     Dates: start: 20190306, end: 20200701
  2. ARMOUR THYROID [Concomitant]
     Active Substance: THYROID, PORCINE
  3. BIOIDENTICAL HORMONES [Concomitant]
  4. UNSPECIFIED SUPPLEMENTS [Concomitant]

REACTIONS (3)
  - Recalled product administered [None]
  - Hypertension [None]
  - Respiratory disorder [None]
